FAERS Safety Report 6478354-4 (Version None)
Quarter: 2009Q4

REPORT INFORMATION
  Report Type: 
  Country: None (occurrence: None)
  Receive Date: 20091207
  Receipt Date: 20091126
  Transmission Date: 20100525
  Serious: Yes (Other)
  Sender: FDA-Public Use
  Company Number: BR-ASTRAZENECA-2009SE29201

PATIENT
  Age: 59 Year
  Sex: Female
  Weight: 60 kg

DRUGS (1)
  1. SYMBICORT [Suspect]
     Indication: ASTHMA
     Dosage: 320/9 MCG
     Route: 055
     Dates: start: 20040101

REACTIONS (9)
  - ARRHYTHMIA [None]
  - BLOOD CHOLESTEROL INCREASED [None]
  - BLOOD GLUCOSE INCREASED [None]
  - CARDIAC FAILURE [None]
  - CARDIOMEGALY [None]
  - COUGH [None]
  - DYSPNOEA [None]
  - NASOPHARYNGITIS [None]
  - VENTRICULAR HYPERTROPHY [None]
